FAERS Safety Report 7501784-6 (Version None)
Quarter: 2011Q2

REPORT INFORMATION
  Report Type: 
  Country: None (occurrence: None)
  Receive Date: 20110523
  Receipt Date: 20110523
  Transmission Date: 20111010
  Serious: Yes (Life-Threatening, Hospitalization)
  Sender: FDA-Public Use
  Company Number: None

PATIENT
  Age: 48 Year
  Sex: Female
  Weight: 59.8748 kg

DRUGS (2)
  1. LEVETIRACETAM [Suspect]
     Indication: CONVULSION
     Dosage: 500 MG./DAY + 750 MG./NIGHT ONCE PO
     Route: 048
     Dates: start: 20101105, end: 20110505
  2. LEVETIRACETAM [Suspect]
     Indication: MIGRAINE
     Dosage: 500 MG./DAY + 750 MG./NIGHT ONCE PO
     Route: 048
     Dates: start: 20101105, end: 20110505

REACTIONS (7)
  - PRODUCT SUBSTITUTION ISSUE [None]
  - CONTUSION [None]
  - FALL [None]
  - LOSS OF CONSCIOUSNESS [None]
  - FACE INJURY [None]
  - PERIORBITAL HAEMATOMA [None]
  - CONVULSION [None]
